FAERS Safety Report 4702662-8 (Version None)
Quarter: 2005Q2

REPORT INFORMATION
  Report Type: 
  Country: None (occurrence: None)
  Receive Date: 20050629
  Receipt Date: 20041015
  Transmission Date: 20051028
  Serious: No
  Sender: FDA-Public Use
  Company Number: US-GLAXOSMITHKLINE-A0530010A

PATIENT
  Age: 65 Year
  Sex: Male

DRUGS (4)
  1. ZYBAN [Suspect]
     Dosage: 150MG PER DAY
     Route: 048
     Dates: start: 20041009
  2. AVODART [Suspect]
     Route: 048
  3. ATENOLOL [Concomitant]
  4. LIPITOR [Concomitant]

REACTIONS (2)
  - HYPERTROPHY BREAST [None]
  - SEXUAL DYSFUNCTION [None]
